FAERS Safety Report 12473188 (Version 2)
Quarter: 2016Q3

REPORT INFORMATION
  Report Type: Spontaneous
  Country: US (occurrence: US)
  Receive Date: 20160616
  Receipt Date: 20160707
  Transmission Date: 20161109
  Serious: Yes (Hospitalization)
  Sender: FDA-Public Use
  Company Number: US-PFIZER INC-2016295083

PATIENT
  Age: 7 Month
  Sex: Female
  Weight: 6.1 kg

DRUGS (3)
  1. PROPANOLOL HCL [Suspect]
     Active Substance: PROPRANOLOL HYDROCHLORIDE
     Indication: HAEMANGIOMA
     Dosage: 0.6 MG/KG, (20 MG/5 ML)
     Route: 048
  2. PROPANOLOL HCL [Suspect]
     Active Substance: PROPRANOLOL HYDROCHLORIDE
     Dosage: THREE 6-MG/KG DOSES
     Route: 048
  3. AMOXICILLIN TRIHYDRATE AND CLAVULANATE POTASS [Concomitant]
     Indication: OTITIS MEDIA
     Dosage: 49 MG/KG, UNK (BASED ON THE AMOXICILLIN COMPONENT)
     Route: 048

REACTIONS (4)
  - Accidental overdose [Unknown]
  - Bradycardia [Unknown]
  - Toxicity to various agents [Unknown]
  - Hypotension [Unknown]
